FAERS Safety Report 21641125 (Version 1)
Quarter: 2022Q4

REPORT INFORMATION
  Report Type: Report from Study
  Country: US (occurrence: US)
  Receive Date: 20221125
  Receipt Date: 20221125
  Transmission Date: 20230113
  Serious: No
  Sender: FDA-Public Use
  Company Number: US-ABBVIE-4166276

PATIENT
  Sex: Female

DRUGS (4)
  1. HUMIRA [Suspect]
     Active Substance: ADALIMUMAB
     Indication: Crohn^s disease
     Route: 058
  2. Pfizer/BioNTech [Concomitant]
     Indication: COVID-19 immunisation
     Dosage: 1ST DOSE,1 IN ONCE
     Route: 030
     Dates: start: 20210528, end: 20210528
  3. Pfizer/BioNTech [Concomitant]
     Indication: COVID-19 immunisation
     Dosage: 2ND DOSE,1 IN ONCE
     Route: 030
     Dates: start: 20210618, end: 20210618
  4. Pfizer/BioNTech [Concomitant]
     Indication: COVID-19 immunisation
     Dosage: 3RD/ BOOSTER DOSE,1 IN ONCE
     Route: 030
     Dates: start: 20220204, end: 20220204

REACTIONS (1)
  - Crohn^s disease [Recovering/Resolving]
